FAERS Safety Report 15482518 (Version 1)
Quarter: 2018Q4

REPORT INFORMATION
  Report Type: Spontaneous
  Country: US (occurrence: US)
  Receive Date: 20181010
  Receipt Date: 20181010
  Transmission Date: 20190205
  Serious: No
  Sender: FDA-Public Use
  Company Number: US-SA-2018SA275403

PATIENT
  Sex: Female
  Weight: 138 kg

DRUGS (16)
  1. KEVZARA [Suspect]
     Active Substance: SARILUMAB
     Indication: RHEUMATOID ARTHRITIS
     Dosage: UNK
     Dates: start: 201802, end: 201803
  2. PROTONIX [OMEPRAZOLE] [Concomitant]
     Dosage: 40 MG, QD
     Route: 048
  3. DULERA [Concomitant]
     Active Substance: FORMOTEROL FUMARATE DIHYDRATE\MOMETASONE FUROATE
     Dosage: 5 UG
     Route: 055
  4. VITAMIN D3 [Concomitant]
     Active Substance: CHOLECALCIFEROL
     Dosage: 50000 U, QW
     Route: 048
  5. PREDNISONE. [Concomitant]
     Active Substance: PREDNISONE
     Dosage: 5 MG, QD
     Route: 048
  6. ORENCIA [Concomitant]
     Active Substance: ABATACEPT
     Indication: RHEUMATOID ARTHRITIS
     Dosage: UNK
     Route: 058
     Dates: start: 201608, end: 201801
  7. NYSTATIN. [Concomitant]
     Active Substance: NYSTATIN
     Dosage: UNK UNK, BID
  8. LYRICA [Concomitant]
     Active Substance: PREGABALIN
     Dosage: 100 MG, TID
     Route: 048
  9. BENLY [Concomitant]
     Dosage: 20 MG, QID
     Route: 048
  10. COZAAR [Concomitant]
     Active Substance: LOSARTAN POTASSIUM
     Dosage: 50 MG, QD
     Route: 048
  11. CHLORTHALIDONE. [Concomitant]
     Active Substance: CHLORTHALIDONE
     Dosage: 20 MG, QD
     Route: 048
  12. METHOTREXATE. [Concomitant]
     Active Substance: METHOTREXATE
  13. TOPAMAX [Concomitant]
     Active Substance: TOPIRAMATE
     Dosage: 50 MG
     Route: 048
  14. PRAZOSIN HCL [Concomitant]
     Active Substance: PRAZOSIN HYDROCHLORIDE
     Dosage: 2 MG, TID
     Route: 048
  15. TROKENDI [Concomitant]
     Active Substance: TOPIRAMATE
     Dosage: 25 MG
  16. ALBUTEROL SULFATE. [Concomitant]
     Active Substance: ALBUTEROL SULFATE

REACTIONS (1)
  - Drug ineffective [Unknown]
